FAERS Safety Report 12371440 (Version 2)
Quarter: 2016Q3

REPORT INFORMATION
  Report Type: Spontaneous
  Country: US (occurrence: US)
  Receive Date: 20160516
  Receipt Date: 20160926
  Transmission Date: 20161109
  Serious: No
  Sender: FDA-Public Use
  Company Number: US-MYLANLABS-2015M1031389

PATIENT
  Age: 78 Year
  Sex: Female

DRUGS (2)
  1. VERAPAMIL [Suspect]
     Active Substance: VERAPAMIL HYDROCHLORIDE
     Indication: VENTRICULAR EXTRASYSTOLES
     Dosage: 120 MG, HS
     Route: 048
     Dates: start: 2014, end: 201505
  2. VERAPAMIL [Suspect]
     Active Substance: VERAPAMIL HYDROCHLORIDE
     Indication: OFF LABEL USE
     Dosage: 120 MG, HS
     Route: 048
     Dates: start: 201509

REACTIONS (1)
  - Drug ineffective for unapproved indication [Unknown]
